FAERS Safety Report 8008935-8 (Version None)
Quarter: 2011Q4

REPORT INFORMATION
  Report Type: 
  Country: None (occurrence: None)
  Receive Date: 20111221
  Receipt Date: 20111214
  Transmission Date: 20120403
  Serious: Yes (Other)
  Sender: FDA-Public Use
  Company Number: 1000026274

PATIENT
  Age: 28 Year
  Sex: Female

DRUGS (3)
  1. VIIBRYD [Suspect]
     Indication: DEPRESSION
     Dosage: 10 MG (10 MG, 1 IN 1 D), ORAL
     Route: 048
     Dates: start: 20111026, end: 20111101
  2. VIIBRYD [Suspect]
     Indication: DEPRESSION
     Dosage: 40 MG (40 MG, 1 IN 1 D), ORAL
     Route: 048
     Dates: start: 20111109, end: 20111201
  3. BIRTH CONTROL (NOS) (BIRTH CONTROL (NOS)) (BIRTH CONTROL (NOS)) [Concomitant]

REACTIONS (3)
  - SOMNAMBULISM [None]
  - HALLUCINATION [None]
  - DISORIENTATION [None]
